FAERS Safety Report 9215266 (Version 1)
Quarter: 2013Q2

REPORT INFORMATION
  Report Type: Spontaneous
  Country: US (occurrence: US)
  Receive Date: 20130405
  Receipt Date: 20130405
  Transmission Date: 20140414
  Serious: Yes (Hospitalization, Other)
  Sender: FDA-Public Use
  Company Number: US-PFIZER INC-2013107475

PATIENT
  Age: 51 Year
  Sex: Female
  Weight: 62.59 kg

DRUGS (3)
  1. DILANTIN [Suspect]
     Indication: CONVULSION
     Dosage: 200 MG, 3X/DAY
     Dates: start: 2004, end: 20130312
  2. LYRICA [Suspect]
     Indication: FIBROMYALGIA
     Dosage: 150 MG, 3X/DAY
  3. HYDROCODONE [Concomitant]
     Indication: BACK PAIN
     Dosage: 75 MG, 3X/DAY

REACTIONS (7)
  - Overdose [Unknown]
  - Toxicity to various agents [Unknown]
  - Gait disturbance [Unknown]
  - Tooth extraction [Unknown]
  - Jaw fracture [Unknown]
  - Weight decreased [Unknown]
  - Pain [Unknown]
